FAERS Safety Report 9163701 (Version 1)
Quarter: 2013Q1

REPORT INFORMATION
  Report Type: Report from Study
  Country: JP (occurrence: JP)
  Receive Date: 20130314
  Receipt Date: 20130314
  Transmission Date: 20140127
  Serious: Yes (Other)
  Sender: FDA-Public Use
  Company Number: JP-VERTEX PHARMACEUTICALS INC.-AE-2012-005929

PATIENT
  Age: 63 Year
  Sex: Male

DRUGS (14)
  1. VX-950 (TELAPREVIR) [Suspect]
     Indication: CHRONIC HEPATITIS C
     Dosage: 2250 MG, QD
     Route: 048
     Dates: start: 20120125, end: 20120402
  2. VX-950 (TELAPREVIR) [Suspect]
     Dosage: 1500 MG, QD
     Route: 048
     Dates: start: 20120403, end: 20120417
  3. REBETOL [Suspect]
     Indication: CHRONIC HEPATITIS C
     Dosage: 800 MG, QD
     Route: 048
     Dates: start: 20120125, end: 20120228
  4. REBETOL [Suspect]
     Dosage: 600 MG, QD
     Route: 048
     Dates: start: 20120229, end: 20120306
  5. REBETOL [Suspect]
     Dosage: 400 MG, QD
     Route: 048
     Dates: start: 20120307, end: 20120312
  6. REBETOL [Suspect]
     Dosage: 200 MG, QD
     Route: 048
     Dates: start: 20120313
  7. PEGINTRON [Suspect]
     Indication: CHRONIC HEPATITIS C
     Dosage: 1.36 ?G/KG, QW
     Route: 058
     Dates: start: 20120125, end: 20120214
  8. PEGINTRON [Suspect]
     Dosage: 1.09 ?G/KG, QW
     Route: 058
     Dates: start: 20120221, end: 20120314
  9. PEGINTRON [Suspect]
     Dosage: 1.36 ?G/KG, QW
     Route: 058
     Dates: start: 20120321
  10. ALLELOCK [Concomitant]
     Dosage: 10 MG, QD
     Route: 048
     Dates: start: 20120125, end: 20120604
  11. LOXONIN [Concomitant]
     Dosage: 60 MG, QD
     Route: 048
     Dates: start: 20120125
  12. LOXONIN [Concomitant]
     Dosage: 60 MG, QD/PRN
     Route: 048
     Dates: end: 20120604
  13. TANATRIL [Concomitant]
     Dosage: 5 MG, QD
     Route: 048
  14. PREMINENT [Concomitant]
     Route: 048

REACTIONS (1)
  - Retinal haemorrhage [Recovered/Resolved]
